FAERS Safety Report 25398534 (Version 2)
Quarter: 2025Q3

REPORT INFORMATION
  Report Type: Spontaneous
  Country: US (occurrence: US)
  Receive Date: 20250604
  Receipt Date: 20250816
  Transmission Date: 20251021
  Serious: No
  Sender: ALEXION PHARMACEUTICALS
  Company Number: US-AstraZeneca-CH-00880554AP

PATIENT

DRUGS (1)
  1. BREZTRI [Suspect]
     Active Substance: BUDESONIDE\FORMOTEROL\GLYCOPYRROLATE
     Indication: Chronic obstructive pulmonary disease
     Route: 065

REACTIONS (7)
  - Heart rate abnormal [Unknown]
  - Incorrect dose administered [Unknown]
  - Device use issue [Unknown]
  - Stomatitis [Unknown]
  - Wrong technique in device usage process [Unknown]
  - Hypoacusis [Unknown]
  - Sinus disorder [Unknown]
